FAERS Safety Report 5107586-2 (Version None)
Quarter: 2006Q3

REPORT INFORMATION
  Report Type: 
  Country: None (occurrence: None)
  Receive Date: 20060913
  Receipt Date: 20060913
  Transmission Date: 20061208
  Serious: No
  Sender: FDA-Public Use
  Company Number: None

PATIENT
  Age: 24 Year
  Sex: Female
  Weight: 113.3993 kg

DRUGS (1)
  1. ALAVERT [Suspect]
     Indication: MULTIPLE ALLERGIES
     Dosage: 1 TABLET DAILY PO
     Route: 048
     Dates: start: 20060510, end: 20060612

REACTIONS (4)
  - DIZZINESS [None]
  - HEADACHE [None]
  - MIGRAINE [None]
  - NAUSEA [None]
